FAERS Safety Report 5771754-7 (Version None)
Quarter: 2008Q2

REPORT INFORMATION
  Report Type: 
  Country: None (occurrence: None)
  Receive Date: 20080613
  Receipt Date: 20080605
  Transmission Date: 20081010
  Serious: Yes (Other)
  Sender: FDA-Public Use
  Company Number: US-ROCHE-568789

PATIENT
  Age: 70 Year
  Sex: Male

DRUGS (1)
  1. CELLCEPT [Suspect]
     Indication: PULMONARY HYPERTENSION
     Dosage: INDICATION: PULMONARY HYPERTENSION SECONDARY TO SCLERODERMA
     Route: 065

REACTIONS (1)
  - PANCREATIC MASS [None]
